FAERS Safety Report 8831177 (Version 1)
Quarter: 2012Q4

REPORT INFORMATION
  Report Type: Spontaneous
  Country: US (occurrence: None)
  Receive Date: 20121005
  Receipt Date: 20121005
  Transmission Date: 20130627
  Serious: No
  Sender: FDA-Public Use
  Company Number: None

PATIENT
  Age: 58 Year
  Sex: Male
  Weight: 108.86 kg

DRUGS (1)
  1. TYLENOL EXTRA STRENGTH [Suspect]
     Indication: KNEE PAIN
     Dosage: 2 capsules as needed for pain, 2 or 3 times a day, po
     Route: 048
     Dates: start: 20120909, end: 20120930

REACTIONS (2)
  - Product odour abnormal [None]
  - Product taste abnormal [None]
